FAERS Safety Report 8221910-3 (Version None)
Quarter: 2012Q1

REPORT INFORMATION
  Report Type: 
  Country: None (occurrence: None)
  Receive Date: 20120320
  Receipt Date: 20120308
  Transmission Date: 20120608
  Serious: Yes (Other)
  Sender: FDA-Public Use
  Company Number: US-JNJFOC-20120305396

PATIENT
  Sex: Female
  Weight: 151.96 kg

DRUGS (9)
  1. MERCAPTOPURINE [Suspect]
     Indication: COLITIS ULCERATIVE
     Dosage: 50MG/DAY
     Route: 048
     Dates: start: 20060901
  2. REMICADE [Suspect]
     Indication: COLITIS ULCERATIVE
     Route: 042
     Dates: start: 20120216
  3. REMICADE [Suspect]
     Route: 042
     Dates: start: 20060101
  4. GLUMETZA [Concomitant]
     Indication: DIABETES MELLITUS
     Route: 048
     Dates: start: 20110701
  5. LOMOTIL [Concomitant]
     Route: 048
  6. FLAGYL [Concomitant]
     Indication: COLITIS
     Route: 048
     Dates: start: 20120101
  7. CELEXA [Concomitant]
     Indication: ANTIDEPRESSANT THERAPY
     Route: 048
  8. STARLIX [Concomitant]
     Indication: DIABETES MELLITUS
     Route: 048
     Dates: start: 20120201
  9. FLAGYL [Concomitant]
     Indication: FISTULA
     Route: 048
     Dates: start: 20120101

REACTIONS (6)
  - ANAL FISTULA [None]
  - DRUG INEFFECTIVE [None]
  - CELLULITIS [None]
  - COLITIS [None]
  - WHITE BLOOD CELL COUNT DECREASED [None]
  - ABNORMAL LOSS OF WEIGHT [None]
